FAERS Safety Report 6594538-9 (Version None)
Quarter: 2010Q1

REPORT INFORMATION
  Report Type: 
  Country: None (occurrence: None)
  Receive Date: 20100222
  Receipt Date: 20100210
  Transmission Date: 20100710
  Serious: Yes (Other)
  Sender: FDA-Public Use
  Company Number: PHHY2010US04460

PATIENT
  Sex: Female

DRUGS (2)
  1. EXJADE [Suspect]
     Indication: SERUM FERRITIN INCREASED
     Dosage: 1750 MG, QD
     Route: 048
  2. EXJADE [Suspect]
     Indication: IRON OVERLOAD

REACTIONS (2)
  - BONE MARROW TRANSPLANT [None]
  - MALIGNANT NEOPLASM PROGRESSION [None]
